FAERS Safety Report 4867360-9 (Version None)
Quarter: 2005Q4

REPORT INFORMATION
  Report Type: 
  Country: None (occurrence: None)
  Receive Date: 20051223
  Receipt Date: 20051223
  Transmission Date: 20060501
  Serious: Yes (Hospitalization, Disabling)
  Sender: FDA-Public Use
  Company Number: None

PATIENT
  Sex: Female
  Weight: 68.0396 kg

DRUGS (1)
  1. VIOXX [Suspect]
     Indication: PAIN MANAGEMENT
     Dosage: ONCE A DAY  PO
     Route: 048
     Dates: start: 20020301, end: 20040101

REACTIONS (2)
  - CARDIAC DISORDER [None]
  - DYSPNOEA [None]
